FAERS Safety Report 6147058-X (Version None)
Quarter: 2009Q2

REPORT INFORMATION
  Report Type: 
  Country: None (occurrence: None)
  Receive Date: 20090402
  Receipt Date: 20090323
  Transmission Date: 20091009
  Serious: Yes (Other)
  Sender: FDA-Public Use
  Company Number: 1000004967

PATIENT
  Age: 66 Year
  Sex: Male
  Weight: 80 kg

DRUGS (1)
  1. CAMPRAL [Suspect]
     Indication: PROPHYLAXIS
     Dosage: 6 DOSAGE FORMS (2 DOSAGE FROMS, 3 IN 1 D), ORAL
     Route: 048
     Dates: start: 20080611, end: 20080714

REACTIONS (2)
  - ELECTROCARDIOGRAM QT PROLONGED [None]
  - VENTRICULAR TACHYCARDIA [None]
